FAERS Safety Report 8327411-6 (Version None)
Quarter: 2012Q2

REPORT INFORMATION
  Report Type: 
  Country: None (occurrence: None)
  Receive Date: 20120424
  Receipt Date: 20120418
  Transmission Date: 20120825
  Serious: Yes (Hospitalization)
  Sender: FDA-Public Use
  Company Number: 2012030830

PATIENT
  Age: 69 Year
  Sex: Female
  Weight: 47.1741 kg

DRUGS (26)
  1. HIZENTRA [Suspect]
  2. HYDROCHLOROTHIAZIDE [Concomitant]
  3. ROGAINE [Concomitant]
  4. COZAAR [Concomitant]
  5. SINGULAIR [Concomitant]
  6. ACTONEL [Concomitant]
  7. RANITIDINE HYDROCHLORIDE [Concomitant]
  8. ACETAMINOPHEN [Concomitant]
  9. FERROUS SULFATE TAB [Concomitant]
  10. HIZENTRA [Suspect]
  11. ASCORBIC ACID [Concomitant]
  12. NEPHROCAPS (NEPHROCAPS) [Concomitant]
  13. NASONEX [Concomitant]
  14. PULMICORT [Concomitant]
  15. HIZENTRA [Suspect]
     Indication: IMMUNODEFICIENCY COMMON VARIABLE
     Dosage: SEE IMAGE
     Route: 058
     Dates: start: 20110119
  16. HIZENTRA [Suspect]
     Indication: IMMUNODEFICIENCY COMMON VARIABLE
     Dosage: SEE IMAGE
     Route: 058
     Dates: start: 20110127
  17. HIZENTRA [Suspect]
     Indication: IMMUNODEFICIENCY COMMON VARIABLE
     Dosage: SEE IMAGE
     Route: 058
     Dates: start: 20120313
  18. HIZENTRA [Suspect]
     Indication: IMMUNODEFICIENCY COMMON VARIABLE
     Dosage: SEE IMAGE
     Route: 058
     Dates: start: 20120106, end: 20120106
  19. CLOTRIMAZOLE [Concomitant]
  20. PREDNISONE TAB [Concomitant]
  21. XOPENEX [Concomitant]
  22. HIZENTRA [Suspect]
  23. RESTASIS [Concomitant]
  24. BETAPACE [Concomitant]
  25. IPRATROPIUM BROMIDE [Concomitant]
  26. ASPIRIN [Concomitant]

REACTIONS (6)
  - DEEP VEIN THROMBOSIS [None]
  - FATIGUE [None]
  - MALAISE [None]
  - ECCHYMOSIS [None]
  - ASTHENIA [None]
  - DIARRHOEA [None]
